FAERS Safety Report 4800178-1 (Version None)
Quarter: 2005Q4

REPORT INFORMATION
  Report Type: 
  Country: None (occurrence: None)
  Receive Date: 20051017
  Receipt Date: 20051003
  Transmission Date: 20060501
  Serious: Yes (Other)
  Sender: FDA-Public Use
  Company Number: JP-JNJFOC-20051002241

PATIENT

DRUGS (1)
  1. DUROTEP [Suspect]
     Indication: CANCER PAIN
     Route: 062

REACTIONS (1)
  - DELIRIUM [None]
